FAERS Safety Report 8593650-2 (Version None)
Quarter: 2012Q3

REPORT INFORMATION
  Report Type: 
  Country: None (occurrence: None)
  Receive Date: 20120803
  Receipt Date: 20120803
  Transmission Date: 20120928
  Serious: Yes (Life-Threatening, Hospitalization)
  Sender: FDA-Public Use
  Company Number: None

PATIENT
  Age: 48 Year
  Sex: Female
  Weight: 50.8029 kg

DRUGS (1)
  1. DILTIAZEM HCL [Suspect]
     Indication: SUPRAVENTRICULAR TACHYCARDIA
     Dosage: 1 DAILY PO TRIED 3X GOT SICK
     Route: 048
     Dates: start: 20120626, end: 20120627

REACTIONS (10)
  - HYPERHIDROSIS [None]
  - NAUSEA [None]
  - PRODUCT SUBSTITUTION ISSUE [None]
  - PRODUCT QUALITY ISSUE [None]
  - TACHYCARDIA [None]
  - MALAISE [None]
  - DIZZINESS [None]
  - CHEST DISCOMFORT [None]
  - PRESYNCOPE [None]
  - BLOOD PRESSURE INCREASED [None]
